FAERS Safety Report 6762946-9 (Version None)
Quarter: 2010Q2

REPORT INFORMATION
  Report Type: 
  Country: None (occurrence: None)
  Receive Date: 20100608
  Receipt Date: 20100608
  Transmission Date: 20101027
  Serious: No
  Sender: FDA-Public Use
  Company Number: None

PATIENT
  Age: 80 Year
  Sex: Male
  Weight: 77.1115 kg

DRUGS (1)
  1. TAMSULOSIN HCL [Suspect]
     Indication: BENIGN PROSTATIC HYPERPLASIA
     Dosage: 1 CAPSULE QD PO
     Route: 048

REACTIONS (4)
  - HYPERSOMNIA [None]
  - MENTAL DISORDER [None]
  - PRODUCT SUBSTITUTION ISSUE [None]
  - SOMNOLENCE [None]
